FAERS Safety Report 9022476 (Version 1)
Quarter: 2013Q1

REPORT INFORMATION
  Report Type: Spontaneous
  Country: US (occurrence: US)
  Receive Date: 20130118
  Receipt Date: 20130118
  Transmission Date: 20140127
  Serious: No
  Sender: FDA-Public Use
  Company Number: US-JNJFOC-20130102354

PATIENT
  Sex: Female

DRUGS (3)
  1. DURAGESIC [Suspect]
     Indication: INTERVERTEBRAL DISC DEGENERATION
     Dosage: 2 X 75 UG/HR PATCHES
     Route: 062
     Dates: start: 2012
  2. VALIUM [Concomitant]
     Indication: ANXIETY
     Route: 048
  3. LIDODERM PATCH [Concomitant]
     Indication: BACK PAIN
     Route: 062

REACTIONS (12)
  - Pain [Recovered/Resolved]
  - Tremor [Unknown]
  - Diarrhoea [Recovered/Resolved]
  - Anxiety [Unknown]
  - Drug administered at inappropriate site [Recovered/Resolved]
  - Drug withdrawal syndrome [Unknown]
  - Product quality issue [Not Recovered/Not Resolved]
  - Incorrect drug administration duration [Unknown]
  - Wrong technique in drug usage process [Unknown]
  - Application site erosion [Not Recovered/Not Resolved]
  - Drug dose omission [Unknown]
  - Wrong technique in drug usage process [Unknown]
